FAERS Safety Report 8270087-7 (Version None)
Quarter: 2012Q2

REPORT INFORMATION
  Report Type: 
  Country: None (occurrence: None)
  Receive Date: 20120405
  Receipt Date: 20120327
  Transmission Date: 20120825
  Serious: Yes (Congenital Anomaly)
  Sender: FDA-Public Use
  Company Number: AXC-2012-000135

PATIENT
  Age: 1 Decade
  Sex: Female

DRUGS (9)
  1. URSODIOL [Suspect]
     Indication: FOETAL EXPOSURE DURING PREGNANCY
     Dosage: 200 MG, QID, TRANSPLACENTAL
     Route: 064
     Dates: end: 20090515
  2. CALCIUM CARBONATE [Suspect]
     Indication: FOETAL EXPOSURE DURING PREGNANCY
     Dosage: 1 DF, QD, TRANSPLACENTAL
     Route: 064
     Dates: end: 20090515
  3. INNOHEP [Suspect]
     Indication: FOETAL EXPOSURE DURING PREGNANCY
     Dosage: 0.5 MG, QD, TRANSPLACENTAL
     Route: 064
     Dates: end: 20090515
  4. JOSACINE /00273602/ (JOSAMYCIN PROPIONATE) [Suspect]
     Indication: FOETAL EXPOSURE DURING PREGNANCY
     Dosage: TRANSPLACENTAL
     Route: 064
  5. PENTASA [Suspect]
     Indication: FOETAL EXPOSURE DURING PREGNANCY
     Dosage: TRANSPLACENTAL
     Route: 064
  6. PROGRAF [Suspect]
     Indication: FOETAL EXPOSURE DURING PREGNANCY
     Dosage: 2.5 G, QD, TRANSPLACENTAL
     Route: 064
     Dates: end: 20090515
  7. ASPIRIN [Suspect]
     Indication: FOETAL EXPOSURE DURING PREGNANCY
     Dosage: 250 MG, QD, TRANSPLACENTAL
     Route: 064
  8. PREDNISOLONE [Suspect]
     Indication: FOETAL EXPOSURE DURING PREGNANCY
     Dosage: TRANSPLACENTAL
     Route: 064
  9. CELLCEPT [Suspect]
     Indication: FOETAL EXPOSURE DURING PREGNANCY
     Dosage: 250 MG, BID, TRANSPLACENTAL
     Route: 064

REACTIONS (5)
  - CAESAREAN SECTION [None]
  - HAEMATOMA [None]
  - MATERNAL DRUGS AFFECTING FOETUS [None]
  - DYSMORPHISM [None]
  - CONGENITAL NOSE MALFORMATION [None]
